FAERS Safety Report 8870598 (Version 3)
Quarter: 2013Q2

REPORT INFORMATION
  Report Type: Spontaneous
  Country: US (occurrence: US)
  Receive Date: 20121029
  Receipt Date: 20130422
  Transmission Date: 20140414
  Serious: Yes (Other)
  Sender: FDA-Public Use
  Company Number: US-BIOGENIDEC-2012BI046966

PATIENT
  Age: 49 Year
  Sex: Female

DRUGS (9)
  1. AVONEX [Suspect]
     Indication: MULTIPLE SCLEROSIS
     Route: 030
  2. AVONEX [Suspect]
     Indication: MULTIPLE SCLEROSIS
     Route: 030
     Dates: start: 19970307, end: 20070705
  3. TYSABRI [Concomitant]
     Indication: MULTIPLE SCLEROSIS
     Route: 042
  4. TYSABRI [Concomitant]
     Indication: MULTIPLE SCLEROSIS
     Dates: start: 20120503
  5. ZANAFLEX [Concomitant]
  6. TEGRETOL [Concomitant]
  7. ZOLOFT [Concomitant]
  8. BLOOD PRESSURE MEDICATION (NOS) [Concomitant]
  9. PREMARIN [Concomitant]

REACTIONS (1)
  - Basal cell carcinoma [Recovered/Resolved]
